FAERS Safety Report 14582682 (Version 1)
Quarter: 2018Q1

REPORT INFORMATION
  Report Type: Spontaneous
  Country: US (occurrence: US)
  Receive Date: 20180228
  Receipt Date: 20180228
  Transmission Date: 20180509
  Serious: Yes (Other)
  Sender: FDA-Public Use
  Company Number: US-PERRIGO-18US001891

PATIENT
  Age: 32 Year
  Sex: Female
  Weight: 63.49 kg

DRUGS (1)
  1. NIGHTTIME SLEEP AID (DOXYLAMINE SUCCINATE) [Suspect]
     Active Substance: DOXYLAMINE SUCCINATE
     Indication: PRODUCT USED FOR UNKNOWN INDICATION
     Dosage: APPROXIMATELY 250 MG, UNKNOWN
     Route: 048
     Dates: start: 20180214, end: 20180216

REACTIONS (4)
  - Akathisia [Not Recovered/Not Resolved]
  - Hallucination, visual [Unknown]
  - Hallucination, auditory [Unknown]
  - Pallor [Not Recovered/Not Resolved]

NARRATIVE: CASE EVENT DATE: 20180216
